FAERS Safety Report 13362789 (Version 1)
Quarter: 2017Q1

REPORT INFORMATION
  Report Type: Spontaneous
  Country: US (occurrence: US)
  Receive Date: 20170323
  Receipt Date: 20170323
  Transmission Date: 20170429
  Serious: Yes (Other)
  Sender: FDA-Public Use
  Company Number: US-B.I. PHARMACEUTICALS,INC./RIDGEFIELD-2017-BI-015442

PATIENT
  Sex: Male

DRUGS (1)
  1. PRADAXA [Suspect]
     Active Substance: DABIGATRAN ETEXILATE MESYLATE
     Indication: PRODUCT USED FOR UNKNOWN INDICATION
     Route: 048

REACTIONS (13)
  - Orthostatic hypotension [Unknown]
  - Sinus disorder [Unknown]
  - Coronary artery stenosis [Unknown]
  - Cerebral artery occlusion [Unknown]
  - Incarcerated hernia [Unknown]
  - Atrial fibrillation [Unknown]
  - Carotid artery occlusion [Unknown]
  - Obstructive airways disorder [Unknown]
  - Diarrhoea [Unknown]
  - Cardiac failure congestive [Unknown]
  - Condition aggravated [Not Recovered/Not Resolved]
  - Aortic stenosis [Unknown]
  - Renal failure [Unknown]
